FAERS Safety Report 21931123 (Version 1)
Quarter: 2023Q1

REPORT INFORMATION
  Report Type: Spontaneous
  Country: US (occurrence: None)
  Receive Date: 20230130
  Receipt Date: 20230130
  Transmission Date: 20230418
  Serious: No
  Sender: FDA-Public Use
  Company Number: None

PATIENT
  Age: 70 Year
  Sex: Male
  Weight: 156.49 kg

DRUGS (1)
  1. EMPAGLIFLOZIN [Suspect]
     Active Substance: EMPAGLIFLOZIN
     Indication: Diabetes mellitus
     Dosage: 0.5 TAB EVERY DAY PO?
     Route: 048
     Dates: start: 20221117, end: 20221129

REACTIONS (2)
  - Respiratory depression [None]
  - Palpitations [None]

NARRATIVE: CASE EVENT DATE: 20221129
